FAERS Safety Report 9580770 (Version 1)
Quarter: 2013Q4

REPORT INFORMATION
  Report Type: Spontaneous
  Country: US (occurrence: None)
  Receive Date: 20131001
  Receipt Date: 20131001
  Transmission Date: 20140711
  Serious: Yes (Other)
  Sender: FDA-Public Use
  Company Number: None

PATIENT
  Age: 64 Year
  Sex: Male
  Weight: 90.72 kg

DRUGS (1)
  1. LEVAQUIN [Suspect]
     Indication: EPIDIDYMITIS
     Dosage: ONE PILL
     Route: 048
     Dates: start: 20120329, end: 20120330

REACTIONS (5)
  - Tremor [None]
  - Nervousness [None]
  - Anxiety [None]
  - Blood pressure increased [None]
  - Tachyphrenia [None]
